FAERS Safety Report 9803230 (Version 1)
Quarter: 2014Q1

REPORT INFORMATION
  Report Type: Spontaneous
  Country: JP (occurrence: JP)
  Receive Date: 20140108
  Receipt Date: 20140108
  Transmission Date: 20141002
  Serious: Yes (Hospitalization, Other)
  Sender: FDA-Public Use
  Company Number: JP-ROXANE LABORATORIES, INC.-2014-RO-00013RO

PATIENT
  Age: 50 Year
  Sex: Female
  Weight: 65 kg

DRUGS (4)
  1. LOSARTAN POTASSIUM USP [Suspect]
     Indication: HYPERTENSION
     Dosage: 50 MG
     Dates: start: 200403
  2. FLUVOXAMINE [Suspect]
     Indication: DEPRESSION
     Dosage: 50 MG
     Dates: start: 200905
  3. ROSUVASTATIN [Suspect]
     Indication: HYPERCHOLESTEROLAEMIA
     Dosage: 2.5 MG
     Dates: start: 200711
  4. TRICHLORMETHIAZIDE [Suspect]
     Indication: HYPERTENSION
     Dosage: 2 MG
     Dates: start: 200403

REACTIONS (4)
  - Liver injury [Recovered/Resolved]
  - Diabetes mellitus [Unknown]
  - Hepatitis acute [Unknown]
  - Eczema [Unknown]
